FAERS Safety Report 9160192 (Version 2)
Quarter: 2016Q1

REPORT INFORMATION
  Report Type: Spontaneous
  Country: US (occurrence: US)
  Receive Date: 20130313
  Receipt Date: 20160229
  Transmission Date: 20160526
  Serious: Yes (Other)
  Sender: FDA-Public Use
  Company Number: US-ROCHE-1200148

PATIENT
  Age: 72 Year
  Sex: Female

DRUGS (7)
  1. ARMOUR THYROID [Suspect]
     Active Substance: THYROID, PORCINE
     Dosage: 90 MG ALTERNATING WITH 75 MG
     Route: 048
     Dates: end: 20130210
  2. ARMOUR THYROID [Suspect]
     Active Substance: THYROID, PORCINE
     Dosage: 75 MG ALTERNATING WITH 90 MG
     Route: 048
     Dates: start: 2008
  3. INDERAL [Concomitant]
     Active Substance: PROPRANOLOL HYDROCHLORIDE
     Route: 065
  4. ALIGN [Suspect]
     Active Substance: BIFIDOBACTERIUM LONGUM SUBSP. INFANTIS
     Indication: IRRITABLE BOWEL SYNDROME
     Route: 065
  5. ARMOUR THYROID [Suspect]
     Active Substance: THYROID, PORCINE
     Indication: HYPOTHYROIDISM
     Route: 048
     Dates: start: 1996
  6. VALIUM [Suspect]
     Active Substance: DIAZEPAM
     Indication: PRODUCT USED FOR UNKNOWN INDICATION
     Route: 048
  7. VITAMIN C [Concomitant]
     Active Substance: ASCORBIC ACID
     Indication: HYPOVITAMINOSIS
     Route: 065

REACTIONS (17)
  - Feeling cold [Unknown]
  - Ulcer [Recovering/Resolving]
  - Rash [Unknown]
  - Hypertension [Unknown]
  - Dizziness [Not Recovered/Not Resolved]
  - Upper limb fracture [Recovered/Resolved]
  - Blood thyroid stimulating hormone decreased [Unknown]
  - Headache [Unknown]
  - Drug hypersensitivity [Unknown]
  - Dysgeusia [Not Recovered/Not Resolved]
  - Fall [Unknown]
  - Hormone level abnormal [Unknown]
  - Incorrect product storage [Unknown]
  - Dyspepsia [Not Recovered/Not Resolved]
  - Wrist fracture [Recovered/Resolved]
  - Gastrooesophageal reflux disease [Unknown]
  - Cholecystitis [Recovered/Resolved]

NARRATIVE: CASE EVENT DATE: 2003
